FAERS Safety Report 7557840-X (Version None)
Quarter: 2011Q2

REPORT INFORMATION
  Report Type: 
  Country: None (occurrence: None)
  Receive Date: 20110620
  Receipt Date: 20110615
  Transmission Date: 20111010
  Serious: Yes (Other)
  Sender: FDA-Public Use
  Company Number: US-SHIONOGI, INC-2011000098

PATIENT
  Age: 50 Year
  Sex: Female

DRUGS (6)
  1. ZIAC [Concomitant]
  2. SULAR [Suspect]
  3. NORVASC [Suspect]
  4. JANUMET [Concomitant]
  5. LISINOPRIL [Concomitant]
  6. ACTOS [Concomitant]

REACTIONS (1)
  - ISCHAEMIC STROKE [None]
